FAERS Safety Report 26106180 (Version 1)
Quarter: 2025Q4

REPORT INFORMATION
  Report Type: Spontaneous
  Country: EU (occurrence: EU)
  Receive Date: 20251201
  Receipt Date: 20251201
  Transmission Date: 20260117
  Serious: Yes (Other)
  Sender: JOHNSON AND JOHNSON
  Company Number: EU-PFIZER INC-202500229056

PATIENT
  Age: 58 Year
  Sex: Female

DRUGS (1)
  1. INFLIXIMAB [Suspect]
     Active Substance: INFLIXIMAB
     Indication: Product used for unknown indication
     Dosage: EVERY TWO MONTHS FOR A YEAR
     Route: 041
     Dates: start: 2015, end: 2016

REACTIONS (1)
  - Lupus-like syndrome [Recovering/Resolving]
